FAERS Safety Report 7409800-7 (Version None)
Quarter: 2011Q2

REPORT INFORMATION
  Report Type: 
  Country: None (occurrence: None)
  Receive Date: 20110412
  Receipt Date: 20110405
  Transmission Date: 20111010
  Serious: Yes (Other)
  Sender: FDA-Public Use
  Company Number: US-ABBOTT-11P-163-0717031-00

PATIENT
  Sex: Female
  Weight: 97.61 kg

DRUGS (6)
  1. HUMIRA [Suspect]
     Indication: RHEUMATOID ARTHRITIS
     Dates: start: 20101001, end: 20101201
  2. METHOTREXATE [Concomitant]
     Indication: RHEUMATOID ARTHRITIS
  3. ARTHROTEC [Concomitant]
     Indication: RHEUMATOID ARTHRITIS
  4. LISINOPRIL [Concomitant]
     Indication: HYPERTENSION
  5. CLARITIN [Concomitant]
     Indication: HYPERSENSITIVITY
  6. FOLIC ACID [Concomitant]
     Indication: VITAMIN SUPPLEMENTATION

REACTIONS (7)
  - INJECTION SITE ERYTHEMA [None]
  - SKIN INDURATION [None]
  - OEDEMA PERIPHERAL [None]
  - SKIN WARM [None]
  - INJECTION SITE SWELLING [None]
  - VAGINAL HAEMORRHAGE [None]
  - ABDOMINAL PAIN [None]
